FAERS Safety Report 4375349-1 (Version None)
Quarter: 2004Q2

REPORT INFORMATION
  Report Type: 
  Country: None (occurrence: None)
  Receive Date: 20040601
  Receipt Date: 20040512
  Transmission Date: 20050107
  Serious: Yes (Hospitalization)
  Sender: FDA-Public Use
  Company Number: 236439

PATIENT
  Age: 28 Year
  Sex: Male
  Weight: 96 kg

DRUGS (13)
  1. NOVOSEVEN [Suspect]
     Indication: HAEMOPHILIA A WITH ANTI FACTOR VIII
     Dosage: 100 UG/KG, SINGLE, DOSE - SEE IMAGE
     Dates: start: 20040124
  2. NOVOSEVEN [Suspect]
     Indication: HAEMOPHILIA A WITH ANTI FACTOR VIII
     Dosage: 100 UG/KG, SINGLE, DOSE - SEE IMAGE
     Dates: start: 20040126
  3. NOVOSEVEN [Suspect]
     Indication: HAEMOPHILIA A WITH ANTI FACTOR VIII
     Dosage: 100 UG/KG, SINGLE, DOSE - SEE IMAGE
     Dates: start: 20040127
  4. NOVOSEVEN [Suspect]
     Indication: HAEMOPHILIA A WITH ANTI FACTOR VIII
     Dosage: 100 UG/KG, SINGLE, DOSE - SEE IMAGE
     Dates: start: 20040128
  5. NOVOSEVEN [Suspect]
     Indication: HAEMOPHILIA A WITH ANTI FACTOR VIII
     Dosage: 100 UG/KG, SINGLE, DOSE - SEE IMAGE
     Dates: start: 20040129
  6. NOVOSEVEN [Suspect]
     Indication: HAEMOPHILIA A WITH ANTI FACTOR VIII
     Dosage: 100 UG/KG, SINGLE, DOSE - SEE IMAGE
     Dates: start: 20040129
  7. NOVOSEVEN [Suspect]
     Indication: HAEMOPHILIA A WITH ANTI FACTOR VIII
     Dosage: 100 UG/KG, SINGLE, DOSE - SEE IMAGE
     Dates: start: 20040129
  8. NOVOSEVEN [Suspect]
     Indication: HAEMOPHILIA A WITH ANTI FACTOR VIII
     Dosage: 100 UG/KG, SINGLE, DOSE - SEE IMAGE
     Dates: start: 20040130
  9. NOVOSEVEN [Suspect]
     Indication: HAEMOPHILIA A WITH ANTI FACTOR VIII
     Dosage: 100 UG/KG, SINGLE, DOSE - SEE IMAGE
     Dates: start: 20040130
  10. NOVOSEVEN [Suspect]
     Indication: HAEMOPHILIA A WITH ANTI FACTOR VIII
     Dosage: 100 UG/KG, SINGLE, DOSE - SEE IMAGE
     Dates: start: 20040210
  11. UROS (URSODEOXYCHOLIC ACID) [Concomitant]
  12. GASCON (DIMETICONE) [Concomitant]
  13. TELEMINSOFT (BISACODYL) [Concomitant]

REACTIONS (8)
  - DIALYSIS [None]
  - GINGIVAL BLEEDING [None]
  - HAEMARTHROSIS [None]
  - HYDRONEPHROSIS [None]
  - POSTRENAL FAILURE [None]
  - RENAL FAILURE ACUTE [None]
  - THROMBOSIS [None]
  - URINARY TRACT OBSTRUCTION [None]
